FAERS Safety Report 6201584-3 (Version None)
Quarter: 2009Q2

REPORT INFORMATION
  Report Type: 
  Country: None (occurrence: None)
  Receive Date: 20090519
  Receipt Date: 20090416
  Transmission Date: 20091009
  Serious: Yes (Death, Other)
  Sender: FDA-Public Use
  Company Number: 2009EU001649

PATIENT
  Age: 54 Year
  Sex: Male

DRUGS (2)
  1. TACROLIMUS [Suspect]
     Indication: GRAFT VERSUS HOST DISEASE
     Dosage: D
  2. CORTICOSTEROID NOS (CORTICOSTEROID NOS) [Concomitant]

REACTIONS (9)
  - ACINETOBACTER INFECTION [None]
  - BACTERIAL SEPSIS [None]
  - BRAIN ABSCESS [None]
  - CEREBRAL ASPERGILLOSIS [None]
  - CEREBRAL ATROPHY [None]
  - DEPRESSION [None]
  - LEUKOENCEPHALOPATHY [None]
  - LUNG NEOPLASM [None]
  - VASCULAR DEMENTIA [None]
